FAERS Safety Report 11753264 (Version 1)
Quarter: 2015Q4

REPORT INFORMATION
  Report Type: Spontaneous
  Country: US (occurrence: US)
  Receive Date: 20151119
  Receipt Date: 20151119
  Transmission Date: 20160304
  Serious: No
  Sender: FDA-Public Use
  Company Number: US-ETHYPHARM USA CORP-EY-BP-US-2015-334

PATIENT
  Sex: Female

DRUGS (2)
  1. SUBUTEX [Suspect]
     Active Substance: BUPRENORPHINE HYDROCHLORIDE
     Indication: PRODUCT USED FOR UNKNOWN INDICATION
     Dosage: 2-8 MG
  2. SUBUTEX [Suspect]
     Active Substance: BUPRENORPHINE HYDROCHLORIDE

REACTIONS (3)
  - Drug withdrawal syndrome [None]
  - Intentional product use issue [None]
  - Intentional product misuse [None]
